FAERS Safety Report 10383182 (Version 4)
Quarter: 2015Q1

REPORT INFORMATION
  Report Type: Spontaneous
  Country: US (occurrence: US)
  Receive Date: 20140813
  Receipt Date: 20150312
  Transmission Date: 20150720
  Serious: Yes (Other)
  Sender: FDA-Public Use
  Company Number: PHEH2014US010504

PATIENT
  Sex: Female

DRUGS (8)
  1. PREVACID [Concomitant]
     Active Substance: LANSOPRAZOLE
     Indication: GASTROOESOPHAGEAL REFLUX DISEASE
     Dosage: 1 DF, DAILY
     Route: 048
     Dates: start: 20130405
  2. ZOLPIDEM TARTRATE. [Concomitant]
     Active Substance: ZOLPIDEM TARTRATE
     Indication: INSOMNIA
     Dosage: 1 DF, UNK
     Route: 048
     Dates: start: 20120830
  3. LORAZEPAM. [Concomitant]
     Active Substance: LORAZEPAM
     Indication: ANXIETY
     Dosage: 1 DF, EVERY 6 HOURS
     Route: 048
     Dates: start: 20111202
  4. VIVELLE DOT [Suspect]
     Active Substance: ESTRADIOL
     Indication: MENOPAUSAL SYMPTOMS
     Dosage: 0.1 MG, BIW
     Route: 062
     Dates: start: 20120531
  5. VIVELLE DOT [Suspect]
     Active Substance: ESTRADIOL
     Indication: HORMONE REPLACEMENT THERAPY
     Route: 062
  6. ATIVAN [Concomitant]
     Active Substance: LORAZEPAM
     Indication: PRODUCT USED FOR UNKNOWN INDICATION
     Dosage: UNK UNK, PRN
     Route: 065
  7. FLUTICASONE PROPIONATE. [Concomitant]
     Active Substance: FLUTICASONE PROPIONATE
     Indication: ACUTE SINUSITIS
     Dosage: 2 DF (2 SPRAYS), BID
     Route: 045
     Dates: start: 20121010
  8. HYDROCODONE BITARTRATE AND ACETAMINOPHEN [Concomitant]
     Active Substance: ACETAMINOPHEN\HYDROCODONE BITARTRATE
     Indication: ARTHRITIS
     Dosage: 5 DF, DAILY
     Route: 048
     Dates: start: 20120814

REACTIONS (10)
  - Nausea [Unknown]
  - Dysphagia [Unknown]
  - Headache [Unknown]
  - Pain [Unknown]
  - Rash [Unknown]
  - Drug ineffective [Unknown]
  - Hormone level abnormal [Recovered/Resolved]
  - Erythema [Unknown]
  - Flushing [Unknown]
  - Hot flush [Recovered/Resolved]
